FAERS Safety Report 10311853 (Version 2)
Quarter: 2014Q4

REPORT INFORMATION
  Report Type: Spontaneous
  Country: BR (occurrence: BR)
  Receive Date: 20140717
  Receipt Date: 20141226
  Transmission Date: 20150528
  Serious: Yes (Other)
  Sender: FDA-Public Use
  Company Number: BR-ABBVIE-14P-020-1261254-00

PATIENT
  Sex: Male

DRUGS (2)
  1. ETHOSUXIMIDE. [Concomitant]
     Active Substance: ETHOSUXIMIDE
     Indication: PRODUCT USED FOR UNKNOWN INDICATION
  2. DEPAKENE [Suspect]
     Active Substance: VALPROIC ACID
     Indication: EPILEPSY
     Dosage: REPORTER BELIEVED THAT THE FORM OF THE SUSPECT DEPAKENE WAS SYRUP, BUT HE WAS UNSURE.
     Route: 065

REACTIONS (2)
  - Renal haemorrhage [Recovered/Resolved]
  - Blood urine present [Recovered/Resolved]
